FAERS Safety Report 8096125-2 (Version None)
Quarter: 2012Q1

REPORT INFORMATION
  Report Type: 
  Country: None (occurrence: None)
  Receive Date: 20120131
  Receipt Date: 20120130
  Transmission Date: 20120608
  Serious: Yes (Disabling)
  Sender: FDA-Public Use
  Company Number: US-GLAXOSMITHKLINE-A0956059A

PATIENT
  Age: 53 Year
  Sex: Female

DRUGS (13)
  1. AMBIEN [Concomitant]
     Dosage: 10MG AT NIGHT
     Route: 048
  2. CLONIDINE [Concomitant]
     Route: 048
  3. VIACIN [Concomitant]
  4. XANAX [Concomitant]
     Dosage: 1MG PER DAY
     Route: 048
  5. UNKNOWN [Concomitant]
  6. PROTONIX [Concomitant]
     Dosage: 40MG IN THE MORNING
     Route: 048
  7. EFFEXOR XR [Concomitant]
     Dosage: 75MG TWICE PER DAY
  8. ARMOUR [Concomitant]
     Dosage: 60MG TWICE PER DAY
     Route: 048
  9. IRON SULPHATE [Concomitant]
     Indication: PRODUCT USED FOR UNKNOWN INDICATION
     Dosage: 1CAP PER DAY
     Route: 048
  10. LOVAZA [Suspect]
     Indication: BLOOD TRIGLYCERIDES INCREASED
     Dosage: 2CAP TWICE PER DAY
     Route: 048
     Dates: start: 20111031, end: 20111122
  11. ESTRACE [Concomitant]
     Dosage: 1TAB PER DAY
     Route: 048
  12. PHENERGAN [Concomitant]
     Dosage: 25MG IN THE MORNING
     Route: 048
  13. CALTRATE [Concomitant]
     Dosage: 400MG TWICE PER DAY
     Route: 048

REACTIONS (7)
  - ABDOMINAL PAIN UPPER [None]
  - FLATULENCE [None]
  - EPIGASTRIC DISCOMFORT [None]
  - ERUCTATION [None]
  - ABDOMINAL DISTENSION [None]
  - HAEMATEMESIS [None]
  - ABDOMINAL DISCOMFORT [None]
